FAERS Safety Report 14367022 (Version 1)
Quarter: 2018Q1

REPORT INFORMATION
  Report Type: Spontaneous
  Country: CA (occurrence: CA)
  Receive Date: 20180109
  Receipt Date: 20180109
  Transmission Date: 20180509
  Serious: Yes (Other)
  Sender: FDA-Public Use
  Company Number: CA-UCBSA-2018000436

PATIENT
  Age: 36 Year
  Sex: Female

DRUGS (1)
  1. BRIVLERA [Suspect]
     Active Substance: BRIVARACETAM
     Indication: PRODUCT USED FOR UNKNOWN INDICATION
     Dosage: 200 MG DAILY

REACTIONS (2)
  - Seizure [Recovered/Resolved]
  - Dizziness [Not Recovered/Not Resolved]
